FAERS Safety Report 13647924 (Version 2)
Quarter: 2018Q1

REPORT INFORMATION
  Report Type: Report from Study
  Country: BR (occurrence: BR)
  Receive Date: 20170613
  Receipt Date: 20180302
  Transmission Date: 20180508
  Serious: Yes (Other)
  Sender: FDA-Public Use
  Company Number: BR-JNJFOC-20170608284

PATIENT
  Age: 68 Year
  Sex: Female
  Weight: 67 kg

DRUGS (4)
  1. METHOTREXATE. [Concomitant]
     Active Substance: METHOTREXATE
     Route: 065
  2. ENALAPRIL [Concomitant]
     Active Substance: ENALAPRIL
     Route: 065
  3. DIPIRONE [Concomitant]
     Active Substance: METAMIZOLE SODIUM
     Route: 065
  4. SIMPONI [Suspect]
     Active Substance: GOLIMUMAB
     Indication: RHEUMATOID ARTHRITIS
     Route: 058
     Dates: start: 20161126

REACTIONS (5)
  - Drug dose omission [Unknown]
  - Arthralgia [Unknown]
  - Back pain [Unknown]
  - Pneumonia bacterial [Unknown]
  - Product availability issue [Unknown]

NARRATIVE: CASE EVENT DATE: 20170524
